FAERS Safety Report 6952183-7 (Version None)
Quarter: 2010Q3

REPORT INFORMATION
  Report Type: 
  Country: None (occurrence: None)
  Receive Date: 20100829
  Receipt Date: 20100603
  Transmission Date: 20110219
  Serious: No
  Sender: FDA-Public Use
  Company Number: US-ABBOTT-09P-163-0604484-00

PATIENT
  Sex: Female
  Weight: 65.376 kg

DRUGS (4)
  1. NIASPAN [Suspect]
     Indication: BLOOD CHOLESTEROL INCREASED
     Dates: start: 20090909
  2. ESTROGEN PROHIBITOR [Concomitant]
     Indication: BREAST CANCER
     Dosage: UNKNOWN
     Route: 048
     Dates: start: 20030101
  3. VERAPAMIL [Concomitant]
     Indication: HYPERTENSION
     Dosage: UNKNOWN
     Dates: start: 20090101
  4. ATENOLOL [Concomitant]
     Indication: HYPERTENSION
     Dosage: UNKNOWN
     Dates: start: 20090101

REACTIONS (3)
  - FLUSHING [None]
  - INFLUENZA [None]
  - SNEEZING [None]
